FAERS Safety Report 25990111 (Version 1)
Quarter: 2025Q4

REPORT INFORMATION
  Report Type: Spontaneous
  Country: US (occurrence: US)
  Receive Date: 20251103
  Receipt Date: 20251103
  Transmission Date: 20260118
  Serious: Yes (Other)
  Sender: MERZ
  Company Number: US-MRZWEB-2025100000206

PATIENT

DRUGS (1)
  1. XEOMIN [Suspect]
     Active Substance: INCOBOTULINUMTOXINA
     Indication: Product used for unknown indication
     Dosage: 50 INTERNATIONAL UNIT
     Route: 030

REACTIONS (2)
  - Facial paralysis [Unknown]
  - Facial paresis [Unknown]
